FAERS Safety Report 20666299 (Version 1)
Quarter: 2022Q2

REPORT INFORMATION
  Report Type: Spontaneous
  Country: US (occurrence: US)
  Receive Date: 20220403
  Receipt Date: 20220403
  Transmission Date: 20220720
  Serious: Yes (Hospitalization)
  Sender: FDA-Public Use
  Company Number: US-SANOFI-01037075

PATIENT
  Age: 77 Year
  Sex: Male

DRUGS (2)
  1. TOUJEO MAX [Suspect]
     Active Substance: INSULIN GLARGINE
     Indication: Type 2 diabetes mellitus
     Dosage: 65 IU, QD
     Dates: start: 202111
  2. NOVOLIN 70/30 [Concomitant]
     Active Substance: INSULIN HUMAN

REACTIONS (9)
  - Diarrhoea [Unknown]
  - Hospitalisation [Unknown]
  - Weight decreased [Unknown]
  - Taste disorder [Unknown]
  - Vomiting [Recovered/Resolved]
  - Corrective lens user [Unknown]
  - Fatigue [Unknown]
  - Device delivery system issue [Unknown]
  - Incorrect dose administered [Unknown]
